FAERS Safety Report 5315684-3 (Version None)
Quarter: 2007Q2

REPORT INFORMATION
  Report Type: 
  Country: None (occurrence: None)
  Receive Date: 20070503
  Receipt Date: 20070424
  Transmission Date: 20071010
  Serious: Yes (Death)
  Sender: FDA-Public Use
  Company Number: JP-MERCK-0704USA06095

PATIENT
  Age: 74 Year
  Sex: Female

DRUGS (2)
  1. PRIMAXIN [Suspect]
     Indication: PNEUMONIA
     Route: 042
     Dates: start: 20061210, end: 20061212
  2. CIPROFLOXACIN [Concomitant]
     Indication: PNEUMONIA
     Route: 042
     Dates: start: 20061210, end: 20061212

REACTIONS (1)
  - MULTI-ORGAN FAILURE [None]
